FAERS Safety Report 8171687-5 (Version None)
Quarter: 2012Q1

REPORT INFORMATION
  Report Type: 
  Country: None (occurrence: None)
  Receive Date: 20120113
  Receipt Date: 20111004
  Transmission Date: 20120608
  Serious: No
  Sender: FDA-Public Use
  Company Number: PHEH2011US05969

PATIENT
  Age: 8 Year
  Sex: Male
  Weight: 27.2 kg

DRUGS (1)
  1. ILARIS [Suspect]
     Indication: CRYOPYRIN ASSOCIATED PERIODIC SYNDROME
     Dosage: , SUBCUTANEOUS
     Route: 058
     Dates: start: 20110719

REACTIONS (1)
  - PHARYNGITIS STREPTOCOCCAL [None]
